FAERS Safety Report 10611510 (Version 3)
Quarter: 2014Q4

REPORT INFORMATION
  Report Type: Spontaneous
  Country: CH (occurrence: None)
  Receive Date: 20141124
  Receipt Date: 20141218
  Transmission Date: 20150529
  Serious: Yes (Death)
  Sender: FDA-Public Use
  Company Number: 20140741

PATIENT
  Sex: Female
  Weight: .86 kg

DRUGS (5)
  1. ADALATIN (NIFEDIPINE) [Concomitant]
  2. MAGNESIUM SULFATE. [Concomitant]
     Active Substance: MAGNESIUM SULFATE
  3. FERINJECT [Suspect]
     Active Substance: FERRIC CARBOXYMALTOSE
     Indication: IRON DEFICIENCY ANAEMIA
     Route: 064
     Dates: start: 20141012, end: 20141012
  4. AMPICILLIN [Concomitant]
     Active Substance: AMPICILLIN
  5. CELEXANE (ENOXAPARIN SODIUM), [Concomitant]

REACTIONS (9)
  - Apnoea neonatal [None]
  - Caesarean section [None]
  - Maternal drugs affecting foetus [None]
  - Sepsis neonatal [None]
  - Necrotising colitis [None]
  - Premature baby [None]
  - Amniotic cavity infection [None]
  - Twin pregnancy [None]
  - Foetal exposure during pregnancy [None]

NARRATIVE: CASE EVENT DATE: 2014
